FAERS Safety Report 22316521 (Version 2)
Quarter: 2024Q1

REPORT INFORMATION
  Report Type: Report from Study
  Country: US (occurrence: US)
  Receive Date: 20230513
  Receipt Date: 20240122
  Transmission Date: 20240410
  Serious: No
  Sender: FDA-Public Use
  Company Number: US-002147023-NVSC2023US107049

PATIENT
  Sex: Male

DRUGS (3)
  1. LEQVIO [Suspect]
     Active Substance: INCLISIRAN SODIUM
     Indication: Product used for unknown indication
     Dosage: UNK
     Route: 058
  2. LEQVIO [Suspect]
     Active Substance: INCLISIRAN SODIUM
     Dosage: (SECOND INJECTION)
     Route: 065
     Dates: start: 20230724
  3. LEQVIO [Suspect]
     Active Substance: INCLISIRAN SODIUM
     Dosage: (THIRD INJECTION)
     Route: 065

REACTIONS (9)
  - Somnolence [Unknown]
  - Pollakiuria [Unknown]
  - Arthralgia [Unknown]
  - Feeling abnormal [Unknown]
  - Illness [Unknown]
  - Lymphadenopathy [Unknown]
  - Tension headache [Unknown]
  - Eye pain [Unknown]
  - Oral herpes [Unknown]
